FAERS Safety Report 19755882 (Version 2)
Quarter: 2022Q4

REPORT INFORMATION
  Report Type: Report from Study
  Country: US (occurrence: US)
  Receive Date: 20210827
  Receipt Date: 20221229
  Transmission Date: 20230113
  Serious: No
  Sender: FDA-Public Use
  Company Number: US-PFIZER INC-2021008337

PATIENT
  Sex: Male
  Weight: 68.04 kg

DRUGS (2)
  1. LYRICA [Suspect]
     Active Substance: PREGABALIN
     Indication: Nerve injury
     Dosage: 100 MG, 4X/DAY (1 CAPSULE FOUR TIMES A DAY PRN)
     Route: 048
  2. LYRICA [Suspect]
     Active Substance: PREGABALIN
     Indication: Diabetes mellitus

REACTIONS (4)
  - Circumstance or information capable of leading to medication error [Unknown]
  - Depressed mood [Unknown]
  - Nervousness [Unknown]
  - Off label use [Unknown]
